FAERS Safety Report 12547822 (Version 3)
Quarter: 2016Q3

REPORT INFORMATION
  Report Type: Spontaneous
  Country: FR (occurrence: FR)
  Receive Date: 20160712
  Receipt Date: 20160829
  Transmission Date: 20161109
  Serious: Yes (Other)
  Sender: FDA-Public Use
  Company Number: FR-009507513-1607FRA003679

PATIENT
  Age: 81 Year
  Sex: Male

DRUGS (3)
  1. CORTANCYL [Suspect]
     Active Substance: PREDNISONE
     Dosage: 40 MG DAILY
     Route: 048
     Dates: start: 20160527, end: 20160527
  2. KEYTRUDA [Suspect]
     Active Substance: PEMBROLIZUMAB
     Indication: METASTATIC MALIGNANT MELANOMA
     Dosage: 1 DF EVERY 3 WEEKS
     Route: 042
     Dates: start: 20160317, end: 20160407
  3. CORTANCYL [Suspect]
     Active Substance: PREDNISONE
     Indication: AUTOIMMUNE HEPATITIS
     Dosage: 60 MG DAILY
     Route: 048
     Dates: start: 20160504, end: 20160526

REACTIONS (1)
  - Muscular weakness [Unknown]

NARRATIVE: CASE EVENT DATE: 20160520
